FAERS Safety Report 5058176-1 (Version None)
Quarter: 2006Q3

REPORT INFORMATION
  Report Type: 
  Country: None (occurrence: None)
  Receive Date: 20060721
  Receipt Date: 20060711
  Transmission Date: 20061208
  Serious: Yes (Other)
  Sender: FDA-Public Use
  Company Number: US-JNJFOC-20060701987

PATIENT
  Age: 52 Year
  Sex: Male
  Weight: 86.18 kg

DRUGS (2)
  1. RISPERDAL [Suspect]
     Route: 030
  2. RISPERDAL [Suspect]
     Indication: SCHIZOPHRENIA, PARANOID TYPE
     Route: 030

REACTIONS (1)
  - NEUTROPENIA [None]
